FAERS Safety Report 16710703 (Version 1)
Quarter: 2019Q4

REPORT INFORMATION
  Report Type: Spontaneous
  Country: US (occurrence: US)
  Receive Date: 20190815
  Receipt Date: 20190815
  Transmission Date: 20200122
  Serious: Yes (Life-Threatening, Other)
  Sender: FDA-Public Use
  Company Number: None

PATIENT
  Age: 26 Year
  Sex: Female
  Weight: 50.4 kg

DRUGS (8)
  1. DILANTIN [Concomitant]
     Active Substance: PHENYTOIN
  2. TOPAMAX [Concomitant]
     Active Substance: TOPIRAMATE
  3. VERAPAMIL [Concomitant]
     Active Substance: VERAPAMIL HYDROCHLORIDE
  4. DOCUSOL [Concomitant]
     Active Substance: DOCUSATE SODIUM
  5. EPIDIOLEX [Suspect]
     Active Substance: CANNABIDIOL
     Indication: SEIZURE
     Dosage: ?          QUANTITY:4.5 ML/DAY;?
     Route: 048
     Dates: start: 20190108
  6. DOCUSATE SODIUM. [Concomitant]
     Active Substance: DOCUSATE SODIUM
  7. CLONAZEPAM. [Concomitant]
     Active Substance: CLONAZEPAM
  8. VITAMIN D3 [Concomitant]
     Active Substance: CHOLECALCIFEROL

REACTIONS (4)
  - Extra dose administered [None]
  - Status epilepticus [None]
  - Petit mal epilepsy [None]
  - Seizure [None]

NARRATIVE: CASE EVENT DATE: 20190313
